FAERS Safety Report 8424369-6 (Version None)
Quarter: 2012Q2

REPORT INFORMATION
  Report Type: 
  Country: None (occurrence: None)
  Receive Date: 20120608
  Receipt Date: 20110616
  Transmission Date: 20120825
  Serious: No
  Sender: FDA-Public Use
  Company Number: US-ASTRAZENECA-2011SE37244

PATIENT
  Age: 23 Year
  Sex: Male

DRUGS (1)
  1. PULMICORT [Suspect]
     Dosage: 0.5 MG/ 2 ML, 1 ML IN EACH NOSTRILS, TWICE A DAY
     Route: 055

REACTIONS (6)
  - EYE OPERATION [None]
  - WRONG TECHNIQUE IN DRUG USAGE PROCESS [None]
  - HYPERSENSITIVITY [None]
  - OFF LABEL USE [None]
  - SINUSITIS FUNGAL [None]
  - SINUS POLYP [None]
